FAERS Safety Report 8192131-8 (Version None)
Quarter: 2012Q1

REPORT INFORMATION
  Report Type: 
  Country: None (occurrence: None)
  Receive Date: 20120307
  Receipt Date: 20120305
  Transmission Date: 20120608
  Serious: Yes (Other)
  Sender: FDA-Public Use
  Company Number: JP-PFIZER INC-2011310919

PATIENT
  Sex: Male

DRUGS (4)
  1. ARTANE [Suspect]
     Dosage: UNK
     Route: 048
  2. CELESTAMINE TAB [Concomitant]
     Dosage: UNK
  3. LYRICA [Suspect]
     Indication: DYSTONIA
     Dosage: UNK, AS NEEDED
     Route: 048
     Dates: start: 20110501
  4. TEGRETOL [Concomitant]
     Dosage: UNK

REACTIONS (4)
  - HYPOKINESIA [None]
  - SOMNOLENCE [None]
  - MEMORY IMPAIRMENT [None]
  - DIZZINESS [None]
